FAERS Safety Report 20341762 (Version 2)
Quarter: 2022Q1

REPORT INFORMATION
  Report Type: Other
  Country: DE (occurrence: None)
  Receive Date: 20220117
  Receipt Date: 20220203
  Transmission Date: 20220424
  Serious: No
  Sender: FDA-Public Use
  Company Number: DE-ROCHE-3001144

PATIENT
  Age: 62 Year
  Sex: Male
  Weight: 81 kg

DRUGS (17)
  1. OCRELIZUMAB [Suspect]
     Active Substance: OCRELIZUMAB
     Indication: Relapsing multiple sclerosis
     Route: 042
     Dates: start: 20180525, end: 20180608
  2. OCRELIZUMAB [Suspect]
     Active Substance: OCRELIZUMAB
     Route: 042
     Dates: start: 20181116
  3. ZOPICLONE [Concomitant]
     Active Substance: ZOPICLONE
     Indication: Multiple sclerosis relapse
     Route: 048
     Dates: start: 20210519, end: 20210521
  4. ZOPICLONE [Concomitant]
     Active Substance: ZOPICLONE
     Route: 048
     Dates: start: 20200803, end: 20200805
  5. OMEPRAZOLE [Concomitant]
     Active Substance: OMEPRAZOLE
     Indication: Multiple sclerosis relapse
     Route: 048
     Dates: start: 20210519, end: 20210521
  6. OMEPRAZOLE [Concomitant]
     Active Substance: OMEPRAZOLE
     Route: 048
     Dates: start: 20200803, end: 20200805
  7. DIMETHINDENE [Concomitant]
     Active Substance: DIMETHINDENE
     Indication: Premedication
     Route: 042
     Dates: start: 20180525
  8. RANITIDINE HYDROCHLORIDE [Concomitant]
     Active Substance: RANITIDINE HYDROCHLORIDE
     Route: 048
     Dates: start: 20181024, end: 20181026
  9. PFIZER-BIONTECH COVID-19 VACCINE [Concomitant]
     Active Substance: TOZINAMERAN
     Indication: COVID-19 immunisation
     Route: 030
     Dates: start: 20210504, end: 20210504
  10. PFIZER-BIONTECH COVID-19 VACCINE [Concomitant]
     Active Substance: TOZINAMERAN
     Route: 030
     Dates: start: 20210615, end: 20210615
  11. CANDESARTAN CILEXETIL [Concomitant]
     Active Substance: CANDESARTAN CILEXETIL
     Indication: Hypertension
     Route: 048
     Dates: start: 2016
  12. METHYPRED [Concomitant]
     Indication: Multiple sclerosis relapse
     Route: 042
     Dates: start: 20181024, end: 20181026
  13. METHYPRED [Concomitant]
     Route: 042
     Dates: start: 20200803, end: 20200805
  14. METHYLPREDNISOLONE [Concomitant]
     Active Substance: METHYLPREDNISOLONE
     Indication: Multiple sclerosis relapse
     Route: 042
     Dates: start: 20210519, end: 20210521
  15. BISOPROLOL [Concomitant]
     Active Substance: BISOPROLOL
     Indication: Hypertension
     Route: 048
     Dates: start: 2016
  16. METHYLPREDNISOLONE [Concomitant]
     Active Substance: METHYLPREDNISOLONE
     Indication: Premedication
     Route: 042
     Dates: start: 20180525
  17. CHOLECALCIFEROL [Concomitant]
     Active Substance: CHOLECALCIFEROL
     Indication: Vitamin D deficiency
     Route: 048
     Dates: start: 20190517

REACTIONS (1)
  - SARS-CoV-2 test positive [Recovered/Resolved]

NARRATIVE: CASE EVENT DATE: 20211018
